FAERS Safety Report 10018741 (Version 1)
Quarter: 2014Q1

REPORT INFORMATION
  Report Type: Spontaneous
  Country: US (occurrence: None)
  Receive Date: 20140314
  Receipt Date: 20140314
  Transmission Date: 20141002
  Serious: Yes (Hospitalization)
  Sender: FDA-Public Use
  Company Number: None

PATIENT
  Age: 65 Year
  Sex: Female
  Weight: 88.45 kg

DRUGS (1)
  1. ALENDRONATE [Suspect]
     Indication: OSTEOPOROSIS
     Dosage: 1 TABLETS A WEEK 1 TABLET A WEEK TAKEN BY MOUTH
     Route: 048
     Dates: start: 20140302, end: 20140309

REACTIONS (3)
  - Abdominal pain upper [None]
  - Musculoskeletal chest pain [None]
  - Chest pain [None]
